FAERS Safety Report 6181832 (Version 13)
Quarter: 2013Q4

REPORT INFORMATION
  Report Type: Spontaneous
  Country: US (occurrence: US)
  Receive Date: 20061208
  Receipt Date: 20131105
  Transmission Date: 20140711
  Serious: Yes (Hospitalization, Other)
  Sender: FDA-Public Use
  Company Number: PHEH2006US14768

PATIENT
  Sex: Male

DRUGS (1)
  1. ZOMETA [Suspect]
     Dosage: 4 MG
     Route: 042
     Dates: start: 20040810

REACTIONS (50)
  - Colitis [Unknown]
  - Osteonecrosis of jaw [Unknown]
  - Impaired healing [Unknown]
  - Pain [Unknown]
  - Dental caries [Unknown]
  - Exposed bone in jaw [Unknown]
  - Fall [Unknown]
  - Fibula fracture [Unknown]
  - Local swelling [Unknown]
  - Joint effusion [Unknown]
  - Small intestinal obstruction [Unknown]
  - Carcinoid tumour of the small bowel [Unknown]
  - Bone lesion [Unknown]
  - Hypertension [Unknown]
  - Carcinoid tumour [Unknown]
  - Large intestine polyp [Unknown]
  - Adenoma benign [Unknown]
  - Metastases to bone [Unknown]
  - Abdominal pain [Unknown]
  - Metastatic carcinoid tumour [Unknown]
  - Diabetes mellitus inadequate control [Unknown]
  - Atelectasis [Unknown]
  - Anaemia [Unknown]
  - Glaucoma [Unknown]
  - Sickle cell trait [Unknown]
  - Adrenal mass [Unknown]
  - Phlebolith [Unknown]
  - Varicocele [Unknown]
  - Diverticulum [Unknown]
  - Aortic calcification [Unknown]
  - Rectal haemorrhage [Unknown]
  - Ascites [Unknown]
  - Inguinal hernia [Unknown]
  - Osteomyelitis [Unknown]
  - Purulence [Unknown]
  - Hypoaesthesia [Unknown]
  - Tenderness [Unknown]
  - Tooth loss [Unknown]
  - Umbilical hernia [Unknown]
  - Hepatic steatosis [Unknown]
  - Aortic disorder [Unknown]
  - Lipoma [Unknown]
  - Substance abuse [Unknown]
  - Pancreatic carcinoma [Unknown]
  - Neuroendocrine carcinoma metastatic [Unknown]
  - Aortic arteriosclerosis [Unknown]
  - Small intestine carcinoma [Unknown]
  - Emphysema [Unknown]
  - Gingival bleeding [Unknown]
  - Epistaxis [Unknown]
